FAERS Safety Report 21225871 (Version 1)
Quarter: 2022Q3

REPORT INFORMATION
  Report Type: Spontaneous
  Country: US (occurrence: US)
  Receive Date: 20220818
  Receipt Date: 20220818
  Transmission Date: 20221027
  Serious: Yes (Death, Other)
  Sender: FDA-Public Use
  Company Number: US-AMGEN-USASP2022140968

PATIENT

DRUGS (8)
  1. FILGRASTIM [Suspect]
     Active Substance: FILGRASTIM
     Indication: Prophylaxis
     Dosage: UNK
     Route: 065
  2. AZATHIOPRINE [Concomitant]
     Active Substance: AZATHIOPRINE
     Indication: Plasma cell myeloma refractory
     Dosage: 75 MILLIGRAM/SQ. METER
  3. FLUDARABINE [Concomitant]
     Active Substance: FLUDARABINE PHOSPHATE
     Indication: Plasma cell myeloma refractory
     Dosage: UNK
  4. CYTARABINE [Concomitant]
     Active Substance: CYTARABINE
     Indication: Plasma cell myeloma refractory
     Dosage: UNK
  5. IDARUBICIN [Concomitant]
     Active Substance: IDARUBICIN
     Indication: Plasma cell myeloma refractory
     Dosage: UNK
  6. CLADRIBINE [Concomitant]
     Active Substance: CLADRIBINE
     Indication: Plasma cell myeloma refractory
     Dosage: UNK
  7. MITOXANTRONE [Concomitant]
     Active Substance: MITOXANTRONE HYDROCHLORIDE
     Indication: Plasma cell myeloma refractory
     Dosage: UNK
  8. DIETHYLCARBAMAZINE [Concomitant]
     Active Substance: DIETHYLCARBAMAZINE
     Indication: Plasma cell myeloma refractory
     Dosage: 20 MILLIGRAM/SQ. METER

REACTIONS (2)
  - Death [Fatal]
  - Acute myeloid leukaemia recurrent [Unknown]
